FAERS Safety Report 20157742 (Version 2)
Quarter: 2022Q1

REPORT INFORMATION
  Report Type: Spontaneous
  Country: DE (occurrence: DE)
  Receive Date: 20211207
  Receipt Date: 20220105
  Transmission Date: 20220423
  Serious: Yes (Death, Life-Threatening, Hospitalization, Other)
  Sender: FDA-Public Use
  Company Number: DE-002147023-NVSC2021DE102373

PATIENT
  Sex: Female
  Weight: 71 kg

DRUGS (29)
  1. PREDNISOLONE [Suspect]
     Active Substance: PREDNISOLONE
     Indication: Product used for unknown indication
     Dosage: UNK
     Route: 065
  2. VALSARTAN [Suspect]
     Active Substance: VALSARTAN
     Indication: Product used for unknown indication
     Dosage: UNK [MAH: MYLAN DURA]
     Route: 065
     Dates: start: 201702, end: 2018
  3. AMLODIPINE BESYLATE [Suspect]
     Active Substance: AMLODIPINE BESYLATE
     Indication: Product used for unknown indication
     Dosage: ACTUAL: 5 DF, BID, ONCE IN THE MORNING, ONCE IN THE EVENING
     Route: 065
     Dates: start: 200803
  4. LEVOTHYROXINE SODIUM [Suspect]
     Active Substance: LEVOTHYROXINE SODIUM
     Indication: Product used for unknown indication
     Dosage: UNK, QD (STOPPED ON 12 JUN 2018 BUT ONGOING AT DISCHARGE FROM REHABILITATION, 1.25 TABLETS OF 100 ?G
     Route: 048
     Dates: start: 20180524
  5. LEVOTHYROXINE SODIUM [Suspect]
     Active Substance: LEVOTHYROXINE SODIUM
     Dosage: UNK
     Route: 065
     Dates: start: 2014, end: 2016
  6. BISOPROLOL FUMARATE\HYDROCHLOROTHIAZIDE [Suspect]
     Active Substance: BISOPROLOL FUMARATE\HYDROCHLOROTHIAZIDE
     Indication: Product used for unknown indication
     Dosage: UNK
     Route: 065
     Dates: start: 2014, end: 2018
  7. AMLODIPINE [Suspect]
     Active Substance: AMLODIPINE BESYLATE
     Indication: Product used for unknown indication
     Dosage: ACTUAL: 5 MG, BID STOPPED ON 12 JUN 2018, ONGOING AT DISCHARGE FROM REHABILITATION, (8 A.M AND 6 P.M
     Route: 048
     Dates: start: 20180523
  8. AMLODIPINE [Suspect]
     Active Substance: AMLODIPINE BESYLATE
     Dosage: 5 MG, UNKNOWN
     Route: 065
     Dates: start: 2016, end: 2017
  9. PANTOPRAZOLE [Concomitant]
     Active Substance: PANTOPRAZOLE
     Dosage: 40 MG, UNKNOWN
     Route: 065
     Dates: start: 201901
  10. PANTOPRAZOLE [Concomitant]
     Active Substance: PANTOPRAZOLE
     Dosage: 40 MG, QD
     Route: 065
  11. IBUPROFEN [Concomitant]
     Active Substance: IBUPROFEN
     Dosage: UNK, BID (1X 400 , 2X DAILY (MORNING AND EVENING))
     Route: 065
  12. FUROSEMIDE [Concomitant]
     Active Substance: FUROSEMIDE
     Dosage: 40 MG, BID
     Route: 065
     Dates: start: 201903
  13. FERROUS GLUCONATE [Concomitant]
     Active Substance: FERROUS GLUCONATE
     Dosage: 1 DF, QAM
     Route: 065
  14. LEVOTHYROXINE SODIUM [Concomitant]
     Active Substance: LEVOTHYROXINE SODIUM
     Dosage: UNK (125)
     Route: 065
     Dates: start: 2016
  15. LEVOTHYROXINE SODIUM [Concomitant]
     Active Substance: LEVOTHYROXINE SODIUM
     Dosage: UNK, QD (1 X 125)
     Route: 065
     Dates: start: 199003, end: 2018
  16. POLYETHYLENE GLYCOL 3350\POTASSIUM CHLORIDE\SODIUM BICARBONATE\SODIUM [Concomitant]
     Active Substance: POLYETHYLENE GLYCOL 3350\POTASSIUM CHLORIDE\SODIUM BICARBONATE\SODIUM CHLORIDE
     Dosage: UNK (POWDER)
     Route: 065
     Dates: start: 201902
  17. EUTHYROX [Concomitant]
     Active Substance: LEVOTHYROXINE SODIUM
     Dosage: UNK, QD (1X 125, 1X DAILY (MORNING))
     Route: 065
  18. HYDROMORPHONE [Concomitant]
     Active Substance: HYDROMORPHONE
     Dosage: 2 MG
     Route: 065
     Dates: start: 201902
  19. MOMETASONE [Concomitant]
     Active Substance: MOMETASONE
     Dosage: 1 MG/G, UNKNOWN
     Route: 065
  20. MIDAZOLAM [Concomitant]
     Active Substance: MIDAZOLAM
     Dosage: UNK
     Route: 065
     Dates: start: 201903
  21. BISOPROLOL FUMARATE\HYDROCHLOROTHIAZIDE [Concomitant]
     Active Substance: BISOPROLOL FUMARATE\HYDROCHLOROTHIAZIDE
     Dosage: UNK, QD (?X 10/25, 1X DAILY (MORNING))
     Route: 065
     Dates: start: 201302
  22. FENTANYL CT [Concomitant]
     Dosage: 12 MCG/H
     Route: 065
     Dates: start: 201903
  23. DIGITOXIN [Concomitant]
     Active Substance: DIGITOXIN
     Dosage: UNK (0.07)
     Route: 065
     Dates: start: 201901
  24. HALOPERIDOL [Concomitant]
     Active Substance: HALOPERIDOL
     Dosage: 30 ML, UNKNOWN
     Route: 065
     Dates: start: 201902
  25. SIMVASTATIN [Concomitant]
     Active Substance: SIMVASTATIN
     Dosage: UNK (1.0)
     Route: 065
     Dates: start: 201902
  26. ADVITAN [Concomitant]
     Dosage: UNK
     Route: 065
     Dates: start: 2018
  27. ACETAMINOPHEN [Concomitant]
     Active Substance: ACETAMINOPHEN
     Dosage: 1000 MG, UNKNOWN
     Route: 065
     Dates: start: 201903
  28. HYDROCHLOROTHIAZIDE [Concomitant]
     Active Substance: HYDROCHLOROTHIAZIDE
     Dosage: ACTUAL: 25 MG, QD (? TABLET OF 25 MG)
     Route: 048
     Dates: start: 20180504, end: 20180524
  29. BUSPIRONE KENT [Concomitant]
     Dosage: ACTUAL: 5 MG, QD ( STOOPED ON 12 JUN 2018 BUT ONGOING AT DISCHARGE FROM REHABILITATION
     Route: 048
     Dates: start: 20180524

REACTIONS (9)
  - Renal neoplasm [Fatal]
  - Metastases to lung [Fatal]
  - Suicidal ideation [Fatal]
  - Clear cell renal cell carcinoma [Fatal]
  - Renal cancer [Fatal]
  - Metastases to central nervous system [Unknown]
  - Metastatic renal cell carcinoma [Not Recovered/Not Resolved]
  - Brain oedema [Unknown]
  - Adenoma benign [Recovered/Resolved]

NARRATIVE: CASE EVENT DATE: 20080101
